FAERS Safety Report 23768245 (Version 1)
Quarter: 2024Q2

REPORT INFORMATION
  Report Type: Report from Study
  Country: CN (occurrence: CN)
  Receive Date: 20240422
  Receipt Date: 20240422
  Transmission Date: 20240716
  Serious: Yes (Other)
  Sender: FDA-Public Use
  Company Number: CN-UCBSA-2024018132

PATIENT
  Sex: Female

DRUGS (2)
  1. LEVETIRACETAM [Suspect]
     Active Substance: LEVETIRACETAM
     Indication: Epilepsy
     Dosage: INITIAL DOSE 0.5 GRAM, 2X/DAY (BID) DOSE COULD INCREASED TO 1.5 G, BID (DOSE IS INCREASED OR DECREAS
  2. FOLIC ACID [Concomitant]
     Active Substance: FOLIC ACID
     Indication: Product used for unknown indication
     Dosage: UNK

REACTIONS (7)
  - Seizure [Unknown]
  - Gestational diabetes [Unknown]
  - Cholestasis [Unknown]
  - Gestational hypertension [Unknown]
  - Anaemia of pregnancy [Unknown]
  - Premature labour [Unknown]
  - Maternal exposure during pregnancy [Unknown]
